FAERS Safety Report 9855727 (Version 1)
Quarter: 2014Q1

REPORT INFORMATION
  Report Type: Spontaneous
  Country: US (occurrence: None)
  Receive Date: 20140129
  Receipt Date: 20140129
  Transmission Date: 20141002
  Serious: Yes (Life-Threatening, Disabling)
  Sender: FDA-Public Use
  Company Number: None

PATIENT
  Age: 25 Year
  Sex: Male
  Weight: 68.04 kg

DRUGS (1)
  1. ACCUTANE [Suspect]
     Indication: ACNE

REACTIONS (4)
  - Burning sensation [None]
  - Facial pain [None]
  - Migraine [None]
  - Unevaluable event [None]
